FAERS Safety Report 7000240-1 (Version None)
Quarter: 2010Q3

REPORT INFORMATION
  Report Type: 
  Country: None (occurrence: None)
  Receive Date: 20100920
  Receipt Date: 20070723
  Transmission Date: 20110219
  Serious: Yes (Hospitalization, Other)
  Sender: FDA-Public Use
  Company Number: US-ASTRAZENECA-2006UW26086

PATIENT
  Age: 56 Year
  Sex: Male
  Weight: 122.5 kg

DRUGS (16)
  1. SEROQUEL [Suspect]
     Indication: POST-TRAUMATIC STRESS DISORDER
     Route: 048
     Dates: start: 19970101, end: 20030101
  2. SEROQUEL [Suspect]
     Route: 048
     Dates: start: 20040102
  3. RISPERDAL [Concomitant]
  4. ZYPREXA [Concomitant]
  5. PHENOBARBITAL [Concomitant]
     Indication: POST-TRAUMATIC EPILEPSY
     Dosage: 120-180 MG
     Dates: start: 19950424
  6. LANOXIN [Concomitant]
     Dates: start: 19950424
  7. ATIVAN [Concomitant]
     Indication: ANXIETY
     Route: 048
     Dates: start: 19950424
  8. METOPROLOL [Concomitant]
     Dosage: 150 MG AND 50 MG TABLET WAS DISPENSED
     Route: 048
     Dates: start: 20031219
  9. ZOCOR [Concomitant]
     Route: 048
     Dates: start: 20031219
  10. REMERON [Concomitant]
     Route: 048
     Dates: start: 20031219
  11. PAXIL [Concomitant]
     Route: 048
     Dates: start: 20031219
  12. AMBIEN [Concomitant]
     Route: 048
     Dates: start: 20031219
  13. DOCUSATE SODIUM [Concomitant]
     Route: 048
     Dates: start: 20031219
  14. ASPIRIN [Concomitant]
     Dates: start: 20031219
  15. ABILIFY [Concomitant]
     Dates: start: 20050615
  16. ZOLOFT [Concomitant]
     Dates: start: 20050615

REACTIONS (6)
  - BLOOD GLUCOSE INCREASED [None]
  - DIABETES MELLITUS [None]
  - DIABETIC COMA [None]
  - GLUCOSE TOLERANCE IMPAIRED [None]
  - PANCREATITIS [None]
  - TYPE 2 DIABETES MELLITUS [None]
